FAERS Safety Report 7269425-3 (Version None)
Quarter: 2011Q1

REPORT INFORMATION
  Report Type: 
  Country: None (occurrence: None)
  Receive Date: 20110202
  Receipt Date: 20110127
  Transmission Date: 20110831
  Serious: No
  Sender: FDA-Public Use
  Company Number: US-PFIZER INC-2011020115

PATIENT
  Sex: Female
  Weight: 68 kg

DRUGS (1)
  1. PREMARIN [Suspect]
     Indication: OESTROGEN THERAPY
     Dosage: 0.625 MG, 1X/DAY
     Route: 048
     Dates: start: 19740101

REACTIONS (2)
  - HOT FLUSH [None]
  - BREAST TENDERNESS [None]
